FAERS Safety Report 7976143-2 (Version None)
Quarter: 2011Q4

REPORT INFORMATION
  Report Type: 
  Country: None (occurrence: None)
  Receive Date: 20111213
  Receipt Date: 20111013
  Transmission Date: 20120403
  Serious: No
  Sender: FDA-Public Use
  Company Number: US-AMGEN-USASP2011049927

PATIENT
  Age: 48 Year
  Sex: Female
  Weight: 104.31 kg

DRUGS (8)
  1. FOLIC ACID [Concomitant]
     Dosage: 1 MG, UNK
  2. SPIRONOLACTONE [Concomitant]
     Dosage: 100 MG, UNK
  3. OLUX [Concomitant]
     Dosage: UNK
  4. SYNTHROID [Concomitant]
     Dosage: 137 MCG
  5. ENBREL [Suspect]
     Indication: RHEUMATOID ARTHRITIS
     Dosage: 50 MG, QWK
     Route: 058
  6. VITAMIN D [Concomitant]
     Dosage: 1000 UNIT, UNK
  7. ZYRTEC [Concomitant]
     Dosage: 10 MG, UNK
  8. METFORMIN HCL [Concomitant]
     Dosage: 750 MG, UNK

REACTIONS (8)
  - INJECTION SITE PAIN [None]
  - INJECTION SITE RASH [None]
  - INJECTION SITE SWELLING [None]
  - INJECTION SITE PRURITUS [None]
  - INJECTION SITE WARMTH [None]
  - INJECTION SITE DISCOLOURATION [None]
  - INJECTION SITE REACTION [None]
  - INJECTION SITE ERYTHEMA [None]
